FAERS Safety Report 12913087 (Version 1)
Quarter: 2016Q4

REPORT INFORMATION
  Report Type: Spontaneous
  Country: US (occurrence: US)
  Receive Date: 20161104
  Receipt Date: 20161104
  Transmission Date: 20170207
  Serious: No
  Sender: FDA-Public Use
  Company Number: US-ANACOR-2016ANA00225

PATIENT
  Age: 70 Year
  Sex: Female
  Weight: 73.92 kg

DRUGS (9)
  1. ASPIRIN. [Concomitant]
     Active Substance: ASPIRIN
  2. CALTRATE [Concomitant]
     Active Substance: CALCIUM CARBONATE
  3. VITAMIN D [Concomitant]
     Active Substance: CHOLECALCIFEROL
  4. SYNTHROID [Concomitant]
     Active Substance: LEVOTHYROXINE SODIUM
  5. TRAVATAN [Concomitant]
     Active Substance: TRAVOPROST
     Dosage: UNK
  6. FISH OIL [Concomitant]
     Active Substance: FISH OIL
  7. KERYDIN [Suspect]
     Active Substance: TAVABOROLE
     Indication: ONYCHOMYCOSIS
     Dosage: UNK, 1X/DAY
     Route: 061
     Dates: start: 201604, end: 20160721
  8. LIVALO [Concomitant]
     Active Substance: PITAVASTATIN CALCIUM
  9. LOSARTAN. [Concomitant]
     Active Substance: LOSARTAN

REACTIONS (12)
  - Nail disorder [Unknown]
  - Swollen tongue [Recovered/Resolved]
  - Application site pain [Unknown]
  - Papule [Recovering/Resolving]
  - Application site pruritus [Recovered/Resolved]
  - Peripheral swelling [Recovering/Resolving]
  - Application site exfoliation [Recovered/Resolved]
  - Blister [Recovering/Resolving]
  - Oral mucosal blistering [Recovering/Resolving]
  - Skin fissures [Unknown]
  - Pruritus [Recovered/Resolved]
  - Erythema [Recovering/Resolving]

NARRATIVE: CASE EVENT DATE: 201607
